FAERS Safety Report 19574670 (Version 2)
Quarter: 2021Q4

REPORT INFORMATION
  Report Type: Report from Study
  Country: None (occurrence: CA)
  Receive Date: 20210719
  Receipt Date: 20211028
  Transmission Date: 20220303
  Serious: Yes (Hospitalization, Other)
  Sender: FDA-Public Use
  Company Number: CA-ABBVIE-20K-028-3649531-00

PATIENT
  Sex: Female

DRUGS (4)
  1. RINVOQ [Suspect]
     Active Substance: UPADACITINIB
     Indication: Rheumatoid arthritis
     Route: 048
     Dates: start: 20200919, end: 2020
  2. RINVOQ [Suspect]
     Active Substance: UPADACITINIB
     Route: 048
     Dates: start: 202109
  3. COVID-19 VACCINE [Concomitant]
     Indication: COVID-19 prophylaxis
     Route: 030
     Dates: start: 2021, end: 2021
  4. COVID-19 VACCINE [Concomitant]
     Route: 030
     Dates: start: 2021, end: 2021

REACTIONS (9)
  - Hip fracture [Unknown]
  - Aortic occlusion [Unknown]
  - Urinary tract infection [Not Recovered/Not Resolved]
  - Dyspnoea [Recovering/Resolving]
  - Unevaluable event [Unknown]
  - Discouragement [Unknown]
  - Headache [Recovered/Resolved]
  - Unevaluable event [Unknown]
  - Intentional product misuse [Unknown]

NARRATIVE: CASE EVENT DATE: 20200101
